FAERS Safety Report 6505329-9 (Version None)
Quarter: 2009Q4

REPORT INFORMATION
  Report Type: 
  Country: None (occurrence: None)
  Receive Date: 20091218
  Receipt Date: 20091211
  Transmission Date: 20100525
  Serious: Yes (Hospitalization, Other)
  Sender: FDA-Public Use
  Company Number: US-JNJFOC-20091104144

PATIENT
  Sex: Female
  Weight: 151.96 kg

DRUGS (3)
  1. DURAGESIC-100 [Suspect]
     Indication: PAIN
     Dosage: NDC#: 50458-094-05
     Route: 062
     Dates: start: 20091001
  2. DURAGESIC-100 [Suspect]
     Dosage: NDC NUMBER# 5045-809405
     Route: 062
     Dates: start: 20091001
  3. UNKNOWN MEDICATION [Concomitant]

REACTIONS (4)
  - APPLICATION SITE RASH [None]
  - HERNIA [None]
  - INAPPROPRIATE SCHEDULE OF DRUG ADMINISTRATION [None]
  - WRONG TECHNIQUE IN DRUG USAGE PROCESS [None]
